FAERS Safety Report 11932576 (Version 2)
Quarter: 2016Q1

REPORT INFORMATION
  Report Type: Spontaneous
  Country: BR (occurrence: BR)
  Receive Date: 20160120
  Receipt Date: 20160202
  Transmission Date: 20160526
  Serious: Yes (Other)
  Sender: FDA-Public Use
  Company Number: BR-COL_21828_2016

PATIENT
  Sex: Male

DRUGS (3)
  1. PERIOGARD [Suspect]
     Active Substance: CHLORHEXIDINE GLUCONATE
     Indication: DENTAL DISORDER PROPHYLAXIS
     Dosage: 5 ML/ONCE/
     Route: 048
     Dates: start: 20160106, end: 20160106
  2. ANESTESICO [Concomitant]
     Dosage: NI/NI/
     Dates: start: 20160106, end: 20160106
  3. AMOXICILLIN W/CLAVULANTE [Suspect]
     Active Substance: AMOXICILLIN\CLAVULANATE POTASSIUM
     Indication: DENTAL DISORDER PROPHYLAXIS
     Dosage: NI/NI/

REACTIONS (6)
  - Paraesthesia [Recovered/Resolved]
  - Sensory loss [Recovering/Resolving]
  - Face oedema [Recovering/Resolving]
  - Pain [Recovered/Resolved]
  - Haematoma [Recovering/Resolving]
  - Somnolence [Recovered/Resolved]

NARRATIVE: CASE EVENT DATE: 201601
